FAERS Safety Report 9430197 (Version 1)
Quarter: 2013Q3

REPORT INFORMATION
  Report Type: Report from Study
  Country: GB (occurrence: GB)
  Receive Date: 20130730
  Receipt Date: 20130730
  Transmission Date: 20140515
  Serious: Yes (Hospitalization)
  Sender: FDA-Public Use
  Company Number: GB-BAXTER-2013BAX028794

PATIENT
  Age: 86 Year
  Sex: Male

DRUGS (27)
  1. CYCLOPHOSPHAMIDE INJECTION 1G [Suspect]
     Indication: B-CELL LYMPHOMA
     Route: 042
     Dates: start: 20130522
  2. PREDNISONE [Suspect]
     Indication: B-CELL LYMPHOMA
     Dosage: 50 (UNITS NOT REPORTED)
     Route: 048
     Dates: start: 20130522, end: 20130525
  3. PREDNISONE [Suspect]
     Dates: start: 20130523
  4. PREDNISONE [Suspect]
     Dates: start: 20130524
  5. PREDNISONE [Suspect]
     Dates: start: 20130525
  6. VINCRISTINE SULFATE [Suspect]
     Indication: B-CELL LYMPHOMA
     Route: 042
     Dates: start: 20130522
  7. RITUXIMAB [Suspect]
     Indication: B-CELL LYMPHOMA
     Route: 042
     Dates: start: 20130320
  8. RITUXIMAB [Suspect]
     Dates: start: 20130522
  9. RITUXIMAB [Suspect]
     Dates: start: 20130622
  10. BECLOMETHASONE DIPROPIONATE [Concomitant]
     Indication: UPPER-AIRWAY COUGH SYNDROME
     Dates: start: 20111005
  11. BUDESONIDE [Concomitant]
     Indication: CHRONIC OBSTRUCTIVE PULMONARY DISEASE
     Dates: start: 20111019
  12. CARBOCISTEINE [Concomitant]
     Indication: CHRONIC OBSTRUCTIVE PULMONARY DISEASE
     Dates: start: 20120113
  13. CHLORPHENIRAMINE MALEATE [Concomitant]
     Indication: PREMEDICATION
     Dates: start: 20130410
  14. CLARITHROMYCIN [Concomitant]
     Indication: CHRONIC OBSTRUCTIVE PULMONARY DISEASE
     Dates: start: 20120701
  15. DALTEPARIN [Concomitant]
     Indication: PRODUCT USED FOR UNKNOWN INDICATION
     Dates: start: 20130525, end: 20130525
  16. DOMPERIDONE [Concomitant]
     Indication: VOMITING
     Dates: start: 20130320
  17. DOUBLEBASE [Concomitant]
     Indication: DRY SKIN
     Dates: start: 20111019
  18. LERCANIDIPINE HYDROCHLORIDE [Concomitant]
     Indication: HYPERTENSION
     Dates: start: 20111024
  19. MIRAPEXIN [Concomitant]
     Indication: RESTLESS LEGS SYNDROME
     Dates: start: 20111005
  20. MOMETASONE FUROATE [Concomitant]
     Indication: RASH
     Dates: start: 20110617
  21. ONDANSETRON [Concomitant]
     Indication: VOMITING
     Dates: start: 20130410
  22. PARACETAMOL [Concomitant]
     Indication: PREMEDICATION
     Dates: start: 20130410
  23. QUININE SULFATE [Concomitant]
     Indication: MUSCLE SPASMS
     Dates: start: 20111024
  24. RAMIPRIL [Concomitant]
     Indication: HYPERTENSION
     Dates: start: 20111024
  25. RANITIDINE [Concomitant]
     Indication: PRODUCT USED FOR UNKNOWN INDICATION
     Dates: start: 20130501
  26. SENNA [Concomitant]
     Indication: CONSTIPATION
     Dates: start: 20130325
  27. TIOTROPIUM BROMIDE [Concomitant]
     Indication: CHRONIC OBSTRUCTIVE PULMONARY DISEASE
     Dates: start: 20111005

REACTIONS (2)
  - Lower respiratory tract infection [Not Recovered/Not Resolved]
  - Febrile neutropenia [Unknown]
